FAERS Safety Report 9806528 (Version 2)
Quarter: 2014Q1

REPORT INFORMATION
  Report Type: Spontaneous
  Country: FR (occurrence: FR)
  Receive Date: 20140109
  Receipt Date: 20140121
  Transmission Date: 20141002
  Serious: Yes (Hospitalization, Other)
  Sender: FDA-Public Use
  Company Number: FR-PFIZER INC-2014001552

PATIENT
  Age: 45 Year
  Sex: Male

DRUGS (6)
  1. LYRICA [Suspect]
     Indication: PUDENDAL CANAL SYNDROME
     Dosage: 75 MG, 2X/DAY
     Route: 048
     Dates: start: 20130116
  2. LYRICA [Suspect]
     Dosage: DAILY DOSE RANGING FROM 75 TO 150 MG TWICE DAILY
     Dates: end: 20131119
  3. LIDOCAINE [Concomitant]
     Dosage: 4 ML, ON EACH SIDE
     Dates: start: 20130627
  4. ALTIM [Concomitant]
     Dosage: 1 ML, ON EACH SIDE
     Dates: start: 20130627
  5. DIPROSTENE [Concomitant]
     Dosage: 1 AMPOULE ON EACH SIDE
     Dates: start: 20130725
  6. KETOPROFEN [Concomitant]
     Dosage: 100 MG, DAILY AS NEEDED

REACTIONS (18)
  - Oedema [Recovering/Resolving]
  - Weight increased [Recovered/Resolved]
  - Skin fragility [Recovered/Resolved]
  - Asthenia [Recovering/Resolving]
  - Hepatic enzyme increased [Recovered/Resolved]
  - Electrocardiogram T wave abnormal [Recovered/Resolved]
  - Thrombosis [Unknown]
  - Hypothyroidism [Unknown]
  - Retroperitoneal fibrosis [Unknown]
  - Mass [Unknown]
  - Pollakiuria [Unknown]
  - Dysuria [Unknown]
  - Nausea [Unknown]
  - Decreased appetite [Unknown]
  - Vitamin D decreased [Recovered/Resolved]
  - Hypophosphataemia [Recovered/Resolved]
  - Abdominal pain upper [Unknown]
  - Anxiety [Unknown]
